FAERS Safety Report 10575790 (Version 1)
Quarter: 2014Q4

REPORT INFORMATION
  Report Type: Spontaneous
  Country: FR (occurrence: FR)
  Receive Date: 20141111
  Receipt Date: 20141111
  Transmission Date: 20150529
  Serious: Yes (Other)
  Sender: FDA-Public Use
  Company Number: FR-BAYER-2014-163865

PATIENT
  Age: 22 Year
  Sex: Male

DRUGS (2)
  1. KOGENATE [Suspect]
     Active Substance: ANTIHEMOPHILIC FACTOR, HUMAN RECOMBINANT
  2. TETRALYSAL [Concomitant]
     Active Substance: LYMECYCLINE
     Indication: ACNE
     Dosage: UNK
     Dates: start: 2014

REACTIONS (1)
  - Blood urine present [None]
